FAERS Safety Report 9196965 (Version 2)
Quarter: 2013Q2

REPORT INFORMATION
  Report Type: Spontaneous
  Country: US (occurrence: US)
  Receive Date: 20130328
  Receipt Date: 20130402
  Transmission Date: 20140414
  Serious: Yes (Other)
  Sender: FDA-Public Use
  Company Number: US-ROCHE-1204398

PATIENT
  Sex: Male

DRUGS (2)
  1. ZELBORAF [Suspect]
     Indication: MALIGNANT MELANOMA
     Route: 065
     Dates: start: 20121224
  2. INTERFERON ALFA-2A [Suspect]
     Indication: MALIGNANT MELANOMA
     Route: 065

REACTIONS (3)
  - Arterial haemorrhage [Unknown]
  - Mesenteric haemorrhage [Unknown]
  - Neoplasm [Not Recovered/Not Resolved]
